FAERS Safety Report 5740704-1 (Version None)
Quarter: 2008Q2

REPORT INFORMATION
  Report Type: 
  Country: None (occurrence: None)
  Receive Date: 20080516
  Receipt Date: 20080508
  Transmission Date: 20081010
  Serious: Yes (Other)
  Sender: FDA-Public Use
  Company Number: US-PFIZER INC-2008041236

PATIENT
  Sex: Female
  Weight: 81.818 kg

DRUGS (2)
  1. CHANTIX [Suspect]
     Indication: SMOKING CESSATION THERAPY
     Dates: start: 20070906, end: 20071107
  2. ESTRADIOL [Concomitant]
     Route: 048

REACTIONS (5)
  - ANXIETY [None]
  - DEHYDRATION [None]
  - DEPRESSION [None]
  - IMPAIRED WORK ABILITY [None]
  - IRRITABILITY [None]
